FAERS Safety Report 7541892-7 (Version None)
Quarter: 2011Q2

REPORT INFORMATION
  Report Type: 
  Country: None (occurrence: None)
  Receive Date: 20110606
  Receipt Date: 20110531
  Transmission Date: 20111010
  Serious: Yes (Hospitalization)
  Sender: FDA-Public Use
  Company Number: 2011SP016907

PATIENT
  Age: 76 Year
  Sex: Male

DRUGS (11)
  1. HALCION [Concomitant]
  2. DOGMATIL [Concomitant]
  3. REMERON [Suspect]
     Indication: PRODUCT USED FOR UNKNOWN INDICATION
     Dosage: 45 MG;QD;PO
     Route: 048
     Dates: start: 20110201, end: 20110408
  4. METFORMIN HCL [Concomitant]
  5. ACTOS [Concomitant]
  6. ISOSORBIDE DINITRATE [Concomitant]
  7. CLONAZEPAM [Concomitant]
  8. DIART [Concomitant]
  9. AMLODIPINE [Concomitant]
  10. WARFARIN SODIUM [Concomitant]
  11. TICLOPIDINE HCL [Concomitant]

REACTIONS (2)
  - RHABDOMYOLYSIS [None]
  - ARTHRALGIA [None]
